FAERS Safety Report 9601346 (Version 2)
Quarter: 2013Q4

REPORT INFORMATION
  Report Type: Spontaneous
  Country: US (occurrence: US)
  Receive Date: 20131007
  Receipt Date: 20131017
  Transmission Date: 20140711
  Serious: No
  Sender: FDA-Public Use
  Company Number: US-B.I. PHARMACEUTICALS,INC./RIDGEFIELD-2013-BI-30713BP

PATIENT
  Age: 31 Year
  Sex: Female
  Weight: 95 kg

DRUGS (4)
  1. ZANTAC (RANITIDINE HYDROCHLORIDE) [Suspect]
     Indication: DYSPEPSIA
     Route: 048
     Dates: start: 201302, end: 201309
  2. ZANTAC (RANITIDINE HYDROCHLORIDE) [Suspect]
     Indication: DYSPEPSIA
  3. PRENATAL MULTIVITAMINS [Concomitant]
     Indication: PREGNANCY
     Route: 048
  4. THYROID PILL [Concomitant]
     Indication: HYPOTHYROIDISM
     Route: 048

REACTIONS (3)
  - Exposure during pregnancy [Unknown]
  - Drug screen positive [Recovered/Resolved]
  - Overdose [Recovered/Resolved]
